FAERS Safety Report 10862113 (Version 1)
Quarter: 2015Q1

REPORT INFORMATION
  Report Type: Spontaneous
  Country: TW (occurrence: TW)
  Receive Date: 20150224
  Receipt Date: 20150224
  Transmission Date: 20150721
  Serious: Yes (Hospitalization, Other)
  Sender: FDA-Public Use
  Company Number: TW-BANPHARM-20153428

PATIENT
  Age: 49 Year
  Sex: Female

DRUGS (1)
  1. DIPHENHYDRAMINE UNKNOWN PRODUCT [Suspect]
     Active Substance: DIPHENHYDRAMINE
     Indication: INTENTIONAL PRODUCT MISUSE
     Dosage: UP TO 450 MG, QD,
     Route: 030

REACTIONS (18)
  - Electrocardiogram QT prolonged [Recovering/Resolving]
  - Off label use [Recovered/Resolved]
  - Drug withdrawal syndrome [None]
  - Muscle injury [None]
  - Muscle necrosis [Recovering/Resolving]
  - Intentional product misuse [Recovered/Resolved]
  - Drug dependence [Recovered/Resolved]
  - Injection site warmth [None]
  - Major depression [None]
  - Fibrin D dimer increased [Recovering/Resolving]
  - Irritability [None]
  - Disturbance in attention [None]
  - Insomnia [None]
  - Injection site swelling [None]
  - Oedema peripheral [None]
  - Gait disturbance [None]
  - Anxiety [None]
  - Injection site pain [None]
